FAERS Safety Report 4705556-7 (Version None)
Quarter: 2005Q2

REPORT INFORMATION
  Report Type: 
  Country: None (occurrence: None)
  Receive Date: 20050629
  Receipt Date: 20050217
  Transmission Date: 20051028
  Serious: Yes (Hospitalization)
  Sender: FDA-Public Use
  Company Number: 200422299GDDC

PATIENT
  Age: 43 Year
  Sex: Male
  Weight: 58.5 kg

DRUGS (9)
  1. HEPARIN [Suspect]
     Indication: CORONARY ANGIOPLASTY
     Dosage: 3000 IU/DAY IVB
     Route: 040
     Dates: start: 20041125, end: 20041125
  2. ASPIRIN [Suspect]
     Indication: CORONARY ARTERY DISEASE
     Dosage: 81 MG PO
     Route: 048
     Dates: start: 20041123, end: 20041127
  3. PLAVIX [Concomitant]
  4. BISOPROLOL [Concomitant]
  5. RAMIPRIL [Concomitant]
  6. HYDROCHLOROTHIAZIDE [Concomitant]
  7. PREDNISONE TAB [Concomitant]
  8. HYDROCORTISONE [Concomitant]
  9. BENADRYL [Concomitant]

REACTIONS (2)
  - DUODENAL ULCER [None]
  - POST PROCEDURAL COMPLICATION [None]
